FAERS Safety Report 8967059 (Version 1)
Quarter: 2012Q4

REPORT INFORMATION
  Report Type: 
  Country: IL (occurrence: IL)
  Receive Date: 20121217
  Receipt Date: 20121217
  Transmission Date: 20130627
  Serious: Yes (Other)
  Sender: FDA-Public Use
  Company Number: IL-JNJFOC-20121205990

PATIENT
  Sex: Female

DRUGS (4)
  1. DOXORUBICIN HYDROCHLORIDE (DOXIL) [Suspect]
     Indication: OVARIAN EPITHELIAL CANCER RECURRENT
     Dosage: 35-45 mg/m2
     Route: 042
  2. DOXORUBICIN HYDROCHLORIDE (DOXIL) [Suspect]
     Indication: OVARIAN EPITHELIAL CANCER RECURRENT
     Route: 042
  3. DOXORUBICIN HYDROCHLORIDE (DOXIL) [Suspect]
     Indication: OVARIAN EPITHELIAL CANCER RECURRENT
     Dosage: 40-50 mg/m2 every 4 week.
     Route: 042
  4. CARBOPLATIN [Suspect]
     Indication: OVARIAN EPITHELIAL CANCER RECURRENT
     Dosage: area under the curve (AUC-5)
     Route: 065

REACTIONS (6)
  - Ovarian epithelial cancer recurrent [Unknown]
  - Bone marrow failure [Unknown]
  - Neutropenia [Unknown]
  - Thrombocytopenia [Unknown]
  - Skin toxicity [Unknown]
  - Fatigue [Unknown]
